FAERS Safety Report 22226371 (Version 3)
Quarter: 2023Q2

REPORT INFORMATION
  Report Type: Spontaneous
  Country: US (occurrence: US)
  Receive Date: 20230419
  Receipt Date: 20230508
  Transmission Date: 20230721
  Serious: Yes (Death, Other)
  Sender: FDA-Public Use
  Company Number: US-JNJFOC-20230431620

PATIENT
  Age: 74 Year
  Sex: Female

DRUGS (2)
  1. TECLISTAMAB [Suspect]
     Active Substance: TECLISTAMAB
     Indication: Plasma cell myeloma
     Dosage: 1ST DOSE
     Route: 058
  2. TECLISTAMAB [Suspect]
     Active Substance: TECLISTAMAB
     Dosage: 2ND DOSE
     Route: 058

REACTIONS (3)
  - Plasma cell myeloma [Fatal]
  - Cytokine release syndrome [Recovering/Resolving]
  - Atrial fibrillation [Recovering/Resolving]
